FAERS Safety Report 9729490 (Version 2)
Quarter: 2013Q4

REPORT INFORMATION
  Report Type: Spontaneous
  Country: US (occurrence: US)
  Receive Date: 20131204
  Receipt Date: 20131204
  Transmission Date: 20140711
  Serious: No
  Sender: FDA-Public Use
  Company Number: US-GILEAD-2009-0021159

PATIENT
  Sex: Female
  Weight: 97.52 kg

DRUGS (22)
  1. LETAIRIS [Suspect]
     Indication: PULMONARY ARTERIAL HYPERTENSION
     Route: 048
     Dates: start: 20080129
  2. OXYGEN [Concomitant]
  3. DIOVAN [Concomitant]
  4. LIPITOR [Concomitant]
  5. VASOTEC [Concomitant]
  6. HYDROCHLOROTHIAZIDE [Concomitant]
  7. POTASSIUM CHLORIDE [Concomitant]
  8. ADVAIR [Concomitant]
  9. BUMEX [Concomitant]
  10. XOPENEX [Concomitant]
  11. FLONASE [Concomitant]
  12. PREDNISONE [Concomitant]
  13. HYDROCORTISONE [Concomitant]
  14. OXYCONTIN [Concomitant]
  15. CELEBREX [Concomitant]
  16. ESTRATEST [Concomitant]
  17. NEURONTIN [Concomitant]
  18. ZANTAC [Concomitant]
  19. CELEXA [Concomitant]
  20. MIRAPEX [Concomitant]
  21. XOLAIR [Concomitant]
  22. DETROL LA [Concomitant]

REACTIONS (2)
  - Blood pressure decreased [Unknown]
  - Dizziness [Unknown]
